FAERS Safety Report 9879358 (Version 1)
Quarter: 2014Q1

REPORT INFORMATION
  Report Type: Spontaneous
  Country: AU (occurrence: AU)
  Receive Date: 20140206
  Receipt Date: 20140206
  Transmission Date: 20141002
  Serious: Yes (Death)
  Sender: FDA-Public Use
  Company Number: PHHY2014AU013974

PATIENT
  Age: 61 Year
  Sex: Female

DRUGS (9)
  1. CARBAMAZEPINE [Suspect]
     Dosage: 5 MG/L, UNK
  2. AMITRIPTYLINE [Interacting]
     Dosage: 0.3 MG/L, UNK
  3. CODEINE PHOSPHATE [Interacting]
     Dosage: 0.03 MG/L, UNK
  4. DIAZEPAM [Interacting]
     Dosage: 0.06 MG/L, UNK
  5. OXYCODONE HYDROCHLORIDE [Interacting]
     Dosage: 0.03 MG/L, UNK
  6. PARACETAMOL 1A PHARMA [Interacting]
  7. PROPOXYPHENE HYDROCHLORIDE [Interacting]
     Dosage: 0.08 MG/L, UNK
  8. ZOPICLONE [Interacting]
     Dosage: 0.1 MG/L, UNK
  9. DULOXETINE [Interacting]

REACTIONS (8)
  - Toxicity to various agents [Fatal]
  - Bronchopneumonia [Fatal]
  - Arteriosclerosis coronary artery [Fatal]
  - Obesity [Fatal]
  - Cardiomegaly [Fatal]
  - Inflammation [Fatal]
  - Thyroid adenoma [Fatal]
  - Infection [Fatal]
